FAERS Safety Report 18893167 (Version 1)
Quarter: 2021Q1

REPORT INFORMATION
  Report Type: Report from Study
  Country: DE (occurrence: DE)
  Receive Date: 20210215
  Receipt Date: 20210215
  Transmission Date: 20210420
  Serious: Yes (Hospitalization)
  Sender: FDA-Public Use
  Company Number: DE-ACCORD-217137

PATIENT
  Age: 74 Year
  Sex: Female
  Weight: 80 kg

DRUGS (1)
  1. APIXABAN [Suspect]
     Active Substance: APIXABAN
     Indication: ATRIAL FIBRILLATION
     Route: 048
     Dates: end: 20201127

REACTIONS (4)
  - Dysarthria [Unknown]
  - Pyramidal tract syndrome [Unknown]
  - Hemiparesis [Unknown]
  - Brain stem haemorrhage [Unknown]

NARRATIVE: CASE EVENT DATE: 20201127
